FAERS Safety Report 8709697 (Version 4)
Quarter: 2015Q2

REPORT INFORMATION
  Report Type: Spontaneous
  Country: US (occurrence: US)
  Receive Date: 20120806
  Receipt Date: 20150423
  Transmission Date: 20150821
  Serious: Yes (Hospitalization, Other)
  Sender: FDA-Public Use
  Company Number: US-GLAXOSMITHKLINE-A0946615A

PATIENT
  Age: 59 Year
  Sex: Female

DRUGS (18)
  1. VENTOLIN [Suspect]
     Active Substance: ALBUTEROL SULFATE
     Indication: ASTHMA
     Dosage: UNK UNK, PRN
     Route: 055
  2. VENTOLIN [Suspect]
     Active Substance: ALBUTEROL SULFATE
     Indication: ASTHMA
  3. BYSTOLIC [Concomitant]
     Active Substance: NEBIVOLOL HYDROCHLORIDE
  4. HYDROCHLOROTHIAZIDE. [Concomitant]
     Active Substance: HYDROCHLOROTHIAZIDE
  5. CALCIUM [Concomitant]
     Active Substance: CALCIUM
  6. ADVAIR DISKUS [Suspect]
     Active Substance: FLUTICASONE PROPIONATE\SALMETEROL XINAFOATE
     Indication: ASTHMA
     Dosage: UNK
  7. ALBUTEROL NEBULIZER [Concomitant]
     Active Substance: ALBUTEROL
  8. PREDNISONE. [Concomitant]
     Active Substance: PREDNISONE
  9. ADVAIR HFA [Suspect]
     Active Substance: FLUTICASONE PROPIONATE\SALMETEROL XINAFOATE
     Indication: ASTHMA
  10. NASACORT AQ [Concomitant]
     Active Substance: TRIAMCINOLONE ACETONIDE
  11. ALBUTEROL. [Concomitant]
     Active Substance: ALBUTEROL
  12. VENTOLIN [Suspect]
     Active Substance: ALBUTEROL SULFATE
     Indication: ALLERGIC BRONCHITIS
  13. VITAMIN D 3 [Concomitant]
  14. ADVAIR DISKUS [Suspect]
     Active Substance: FLUTICASONE PROPIONATE\SALMETEROL XINAFOATE
     Indication: CHRONIC OBSTRUCTIVE PULMONARY DISEASE
     Dosage: 1 PUFF(S), BID
     Route: 055
  15. RHINOCORT [Suspect]
     Active Substance: BUDESONIDE
     Indication: MULTIPLE ALLERGIES
     Dosage: 1 UNK, 1D
     Route: 065
  16. LORAZEPAM. [Concomitant]
     Active Substance: LORAZEPAM
  17. ADVAIR HFA [Suspect]
     Active Substance: FLUTICASONE PROPIONATE\SALMETEROL XINAFOATE
     Indication: CHRONIC OBSTRUCTIVE PULMONARY DISEASE
     Dosage: 2 PUFF(S), BID
     Route: 055
     Dates: start: 201106
  18. VERAMYST [Suspect]
     Active Substance: FLUTICASONE FUROATE
     Indication: RHINITIS ALLERGIC
     Dosage: 1 UNK, BID
     Route: 045
     Dates: start: 2008

REACTIONS (34)
  - Pain [Recovered/Resolved]
  - Dizziness [Unknown]
  - Gingival pain [Unknown]
  - Product quality issue [Unknown]
  - Abdominal pain [Recovered/Resolved]
  - Loss of consciousness [Recovered/Resolved]
  - Drug intolerance [Unknown]
  - Nasopharyngitis [Not Recovered/Not Resolved]
  - Oral fungal infection [Unknown]
  - Bursitis [Not Recovered/Not Resolved]
  - Psychomotor hyperactivity [Unknown]
  - Heart rate increased [Unknown]
  - Decreased appetite [Unknown]
  - Blood pressure increased [Recovered/Resolved]
  - Pneumothorax [Recovered/Resolved]
  - Colon gangrene [Recovered/Resolved]
  - Nocturnal dyspnoea [Unknown]
  - Muscle spasms [Recovering/Resolving]
  - Joint swelling [Unknown]
  - Fungal infection [Unknown]
  - Nervousness [Unknown]
  - Overdose [Unknown]
  - Insomnia [Recovered/Resolved]
  - Muscle twitching [Recovering/Resolving]
  - Gingival erythema [Unknown]
  - Abdominal pain upper [Recovered/Resolved]
  - Ill-defined disorder [Unknown]
  - Palpitations [Unknown]
  - Epistaxis [Unknown]
  - Off label use [Unknown]
  - Feeling jittery [Recovered/Resolved]
  - Appendicitis [Recovered/Resolved]
  - Tremor [Unknown]
  - Appendicitis perforated [Recovered/Resolved]

NARRATIVE: CASE EVENT DATE: 2008
